FAERS Safety Report 12677534 (Version 1)
Quarter: 2016Q3

REPORT INFORMATION
  Report Type: Spontaneous
  Country: CN (occurrence: CN)
  Receive Date: 20160823
  Receipt Date: 20160823
  Transmission Date: 20161109
  Serious: Yes (Life-Threatening)
  Sender: FDA-Public Use
  Company Number: CN-FRESENIUS KABI-FK201605634

PATIENT
  Age: 26 Year
  Sex: Female
  Weight: 59 kg

DRUGS (2)
  1. CEFUROXIME SODIUM. [Suspect]
     Active Substance: CEFUROXIME SODIUM
     Indication: CAESAREAN SECTION
     Route: 042
     Dates: start: 20160421, end: 20160421
  2. VOLUVEN [Suspect]
     Active Substance: HYDROXYETHYL STARCH 130/0.4
     Indication: FLUID REPLACEMENT
     Route: 041
     Dates: start: 20160421, end: 20160421

REACTIONS (3)
  - Eyelid oedema [Recovered/Resolved]
  - Rash [Recovered/Resolved]
  - Hypotension [Recovered/Resolved]

NARRATIVE: CASE EVENT DATE: 20160421
